FAERS Safety Report 21074930 (Version 2)
Quarter: 2022Q3

REPORT INFORMATION
  Report Type: Spontaneous
  Country: US (occurrence: US)
  Receive Date: 20220713
  Receipt Date: 20220809
  Transmission Date: 20221027
  Serious: No
  Sender: FDA-Public Use
  Company Number: US-BRISTOL-MYERS SQUIBB COMPANY-2022-065734

PATIENT
  Age: 64 Year
  Sex: Female

DRUGS (1)
  1. REVLIMID [Suspect]
     Active Substance: LENALIDOMIDE
     Indication: Plasma cell myeloma in remission
     Dosage: FREQUENCY: EVERY OTHER DAY ON DAYS 1-21 OF A 28 DAY CYCLE.
     Route: 048
     Dates: start: 20140115

REACTIONS (2)
  - COVID-19 [Recovered/Resolved]
  - Intentional product use issue [Unknown]
